FAERS Safety Report 21266204 (Version 1)
Quarter: 2022Q3

REPORT INFORMATION
  Report Type: Spontaneous
  Country: US (occurrence: US)
  Receive Date: 20220829
  Receipt Date: 20220829
  Transmission Date: 20221027
  Serious: Yes (Other)
  Sender: FDA-Public Use
  Company Number: US-BAYER-2022A120151

PATIENT
  Age: 69 Year
  Sex: Female

DRUGS (2)
  1. ASPIRIN [Suspect]
     Active Substance: ASPIRIN
     Dosage: UNK
  2. PRASUGREL [Concomitant]
     Active Substance: PRASUGREL

REACTIONS (2)
  - Subarachnoid haemorrhage [None]
  - Labelled drug-drug interaction issue [None]
